FAERS Safety Report 17185305 (Version 1)
Quarter: 2019Q4

REPORT INFORMATION
  Report Type: Spontaneous
  Country: US (occurrence: US)
  Receive Date: 20191220
  Receipt Date: 20191220
  Transmission Date: 20200122
  Serious: No
  Sender: FDA-Public Use
  Company Number: US-THERAPEUTICSMD-2019TMD03858

PATIENT
  Age: 73 Year
  Sex: Female
  Weight: 65.76 kg

DRUGS (9)
  1. IMVEXXY [Suspect]
     Active Substance: ESTRADIOL
     Indication: BLOOD OESTROGEN DECREASED
     Dosage: 10 ?G, 2X/WEEK ON TUESDAYS AND FRIDAYS BEFORE BED
     Route: 067
     Dates: start: 2019, end: 20191011
  2. IMVEXXY [Suspect]
     Active Substance: ESTRADIOL
     Indication: BACTERIAL VAGINOSIS
     Dosage: 10 ?G, 2X/WEEK ON TUESDAYS AND FRIDAYS BEFORE BED
     Route: 067
     Dates: start: 20191018
  3. IMVEXXY [Suspect]
     Active Substance: ESTRADIOL
     Indication: ATROPHIC VULVOVAGINITIS
     Dosage: 10 ?G, EVERY OTHER DAY (BUT WAS NOT SURE) BEFORE BED
     Route: 067
     Dates: start: 201906, end: 2019
  4. IMVEXXY [Suspect]
     Active Substance: ESTRADIOL
     Indication: PAIN
  5. IMVEXXY [Suspect]
     Active Substance: ESTRADIOL
     Indication: MUCOSAL DISCOLOURATION
  6. CLINDAMYCIN. [Suspect]
     Active Substance: CLINDAMYCIN
     Indication: OSTEOMYELITIS
     Dosage: UNK
     Dates: start: 2019
  7. ALPRAZOLAM. [Concomitant]
     Active Substance: ALPRAZOLAM
  8. IMVEXXY [Suspect]
     Active Substance: ESTRADIOL
     Indication: URINARY TRACT INFECTION
  9. NABUMETONE. [Concomitant]
     Active Substance: NABUMETONE

REACTIONS (6)
  - Intentional dose omission [Not Recovered/Not Resolved]
  - Cystitis [Unknown]
  - Osteomyelitis [Unknown]
  - Gingivitis [Unknown]
  - Fungal infection [Recovering/Resolving]
  - Off label use [Not Recovered/Not Resolved]

NARRATIVE: CASE EVENT DATE: 2019
